FAERS Safety Report 20896849 (Version 1)
Quarter: 2022Q2

REPORT INFORMATION
  Report Type: Spontaneous
  Country: US (occurrence: None)
  Receive Date: 20220530
  Receipt Date: 20220530
  Transmission Date: 20220721
  Serious: Yes (Disabling)
  Sender: FDA-Public Use
  Company Number: None

PATIENT
  Age: 73 Year
  Sex: Male
  Weight: 83.7 kg

DRUGS (6)
  1. LEVOFLOXACIN [Suspect]
     Active Substance: LEVOFLOXACIN
     Indication: Pneumonia
     Dosage: OTHER QUANTITY : 1 TABLET(S);?FREQUENCY : DAILY;?
     Route: 048
     Dates: start: 20220427, end: 20220430
  2. Hctz 12.5mg po qd [Concomitant]
  3. Albuterol inhaler 2puffs prn [Concomitant]
  4. Incruse inhaler qd [Concomitant]
  5. Symbicort 2 puffs bid [Concomitant]
  6. TYLENOL [Concomitant]
     Active Substance: ACETAMINOPHEN

REACTIONS (7)
  - Dizziness [None]
  - Chest discomfort [None]
  - Pain in extremity [None]
  - Arthralgia [None]
  - Sciatica [None]
  - Gait inability [None]
  - Walking aid user [None]

NARRATIVE: CASE EVENT DATE: 20220428
